FAERS Safety Report 4996949-1 (Version None)
Quarter: 2006Q2

REPORT INFORMATION
  Report Type: 
  Country: None (occurrence: None)
  Receive Date: 20060509
  Receipt Date: 20060213
  Transmission Date: 20061013
  Serious: Yes (Death)
  Sender: FDA-Public Use
  Company Number: JP-ROCHE-436866

PATIENT
  Age: 32 Year
  Sex: Female
  Weight: 100 kg

DRUGS (9)
  1. TAMIFLU [Suspect]
     Route: 048
     Dates: start: 20060212, end: 20060212
  2. PANTETHINE [Concomitant]
     Dosage: DRUG NAME - PALFADIN G
     Route: 048
     Dates: start: 19941001, end: 20060212
  3. RISPERDAL [Concomitant]
     Dosage: FORMULATION REPORTED AS FINE GRANULES. NOTE: 1~2MG
     Route: 048
     Dates: start: 20000330, end: 20060212
  4. LEVOTOMIN [Concomitant]
     Dosage: NOTE: 6.6~10 MG DOSE FORM REPORTED AS POWDER AND TABLET
     Route: 048
     Dates: start: 20020610, end: 20060212
  5. MAGNESIUM OXIDE [Concomitant]
     Route: 048
     Dates: start: 20040615, end: 20060212
  6. ZYPREXA [Concomitant]
     Dosage: THIRD THERAPY REPORTED AS TABLET FORM
     Route: 048
     Dates: start: 20040809, end: 20060212
  7. TEGRETOL [Concomitant]
     Dosage: REPORTED AS FINE GRANULES. NOTE:130~100 MG
     Route: 048
     Dates: start: 20050418, end: 20060212
  8. TASMOLIN [Concomitant]
     Dosage: NOTE: 0.7~1MG
     Route: 048
     Dates: start: 20050425, end: 20060212
  9. CALONAL [Concomitant]
     Route: 048
     Dates: start: 20060212, end: 20060212

REACTIONS (3)
  - CARDIAC FAILURE ACUTE [None]
  - CARDIO-RESPIRATORY ARREST [None]
  - THERAPY NON-RESPONDER [None]
